FAERS Safety Report 8233758-4 (Version None)
Quarter: 2012Q1

REPORT INFORMATION
  Report Type: 
  Country: None (occurrence: None)
  Receive Date: 20120326
  Receipt Date: 20120322
  Transmission Date: 20120608
  Serious: Yes (Other)
  Sender: FDA-Public Use
  Company Number: PHHY2012FR020582

PATIENT
  Sex: Female
  Weight: 55 kg

DRUGS (8)
  1. ZOMETA [Suspect]
     Dosage: 4 MG, EVERY 4 WEEKS
     Route: 042
     Dates: end: 20110501
  2. ZOMETA [Suspect]
     Indication: BREAST CANCER METASTATIC
     Dosage: 4 MG, EVERY 6 WEEKS
     Route: 042
     Dates: start: 20090701
  3. ZOFRAN [Concomitant]
     Indication: BREAST CANCER METASTATIC
     Dosage: 8 MG, UNK
     Dates: start: 20090603, end: 20091101
  4. SOLU-MEDROL [Concomitant]
     Indication: BREAST CANCER METASTATIC
     Dosage: 40 MG, UNK
     Dates: start: 20090603, end: 20091101
  5. CORTICOSTEROID NOS [Concomitant]
  6. XELODA [Concomitant]
     Indication: BREAST CANCER METASTATIC
     Dosage: 1 DF, UNK
     Route: 048
     Dates: start: 20091201, end: 20100901
  7. AVASTIN [Concomitant]
     Indication: BREAST CANCER METASTATIC
     Dosage: 10 MG/KG, UNK
     Dates: start: 20090603, end: 20091101
  8. PACLITAXEL [Concomitant]
     Indication: BREAST CANCER METASTATIC
     Dosage: 50 MG, UNK
     Dates: start: 20090603, end: 20091101

REACTIONS (8)
  - INFLAMMATION [None]
  - PRIMARY SEQUESTRUM [None]
  - SOMNOLENCE [None]
  - PAIN IN JAW [None]
  - PAIN [None]
  - EAR PAIN [None]
  - OSTEONECROSIS OF JAW [None]
  - EXPOSED BONE IN JAW [None]
